FAERS Safety Report 8510770-9 (Version None)
Quarter: 2012Q3

REPORT INFORMATION
  Report Type: 
  Country: None (occurrence: None)
  Receive Date: 20120703
  Receipt Date: 20120625
  Transmission Date: 20120928
  Serious: Yes (Other)
  Sender: FDA-Public Use
  Company Number: AUR-APL-2012-02753

PATIENT
  Age: 63 Year
  Sex: Female

DRUGS (6)
  1. RAMIPRIL [Concomitant]
  2. BENDROFLUAZIDE (BENDROFLUMETHIAZIDE) [Concomitant]
  3. SIMVASTATIN [Suspect]
     Indication: PRODUCT USED FOR UNKNOWN INDICATION
     Dosage: (40 MG), ORAL
     Route: 048
     Dates: start: 20100128
  4. ASPIRIN [Concomitant]
  5. METFFORMIN HYDROCHLORIDE [Concomitant]
  6. ATENOLOL [Concomitant]

REACTIONS (1)
  - PALPITATIONS [None]
